FAERS Safety Report 7305790-6 (Version None)
Quarter: 2011Q1

REPORT INFORMATION
  Report Type: 
  Country: None (occurrence: None)
  Receive Date: 20110222
  Receipt Date: 20110215
  Transmission Date: 20110831
  Serious: Yes (Death)
  Sender: FDA-Public Use
  Company Number: B0701073A

PATIENT
  Sex: Male

DRUGS (3)
  1. CHEMOTHERAPY [Concomitant]
     Route: 065
  2. PLATELETS [Concomitant]
     Indication: THROMBOCYTOPENIA
     Route: 065
  3. REVOLADE [Suspect]
     Indication: THROMBOCYTOPENIA
     Route: 065

REACTIONS (1)
  - HAEMORRHAGE [None]
